FAERS Safety Report 11772872 (Version 1)
Quarter: 2015Q4

REPORT INFORMATION
  Report Type: Spontaneous
  Country: FR (occurrence: FR)
  Receive Date: 20151124
  Receipt Date: 20151124
  Transmission Date: 20160304
  Serious: Yes (Life-Threatening)
  Sender: FDA-Public Use
  Company Number: FR-PFIZER INC-2015403793

PATIENT
  Age: 75 Year
  Sex: Female

DRUGS (8)
  1. KALEORID [Concomitant]
     Active Substance: POTASSIUM CHLORIDE
     Dosage: UNK
  2. CORDARONE [Suspect]
     Active Substance: AMIODARONE HYDROCHLORIDE
     Dosage: 400 MG FOR 5 DAYS WEEKLY
     Route: 048
     Dates: start: 20150327, end: 20150407
  3. PREVISCAN [Concomitant]
     Active Substance: FLUINDIONE
     Dosage: UNK
  4. DOMPERIDONE [Concomitant]
     Active Substance: DOMPERIDONE
     Dosage: UNK
  5. MOVICOL [Concomitant]
     Active Substance: POLYETHYLENE GLYCOL 3350\POTASSIUM CHLORIDE\SODIUM BICARBONATE\SODIUM CHLORIDE
     Dosage: UNK
  6. PANTOPRAZOLE [Concomitant]
     Active Substance: PANTOPRAZOLE SODIUM
     Dosage: UNK
  7. CARDENSIEL [Concomitant]
     Active Substance: BISOPROLOL FUMARATE
     Dosage: UNK
  8. LASILIX [Concomitant]
     Active Substance: FUROSEMIDE
     Dosage: 750 MG, DAILY
     Route: 042

REACTIONS (4)
  - Myxoedema [Not Recovered/Not Resolved]
  - Ventricular hypokinesia [Not Recovered/Not Resolved]
  - Hypothyroidism [Not Recovered/Not Resolved]
  - Cardiac failure [Not Recovered/Not Resolved]

NARRATIVE: CASE EVENT DATE: 20151005
